FAERS Safety Report 9555334 (Version 3)
Quarter: 2013Q4

REPORT INFORMATION
  Report Type: Spontaneous
  Country: JP (occurrence: JP)
  Receive Date: 20130926
  Receipt Date: 20131030
  Transmission Date: 20140711
  Serious: Yes (Other)
  Sender: FDA-Public Use
  Company Number: JP-BAYER-2013-114023

PATIENT
  Age: 44 Year
  Sex: Male
  Weight: 52 kg

DRUGS (9)
  1. BETAFERON [Suspect]
     Indication: MULTIPLE SCLEROSIS
     Dosage: DAILY DOSE 8 MIU
     Route: 058
     Dates: start: 199507, end: 20130409
  2. AMITRIPTYLINE HYDROCHLORIDE [Concomitant]
     Dosage: 10 MG, DAILY
     Route: 048
  3. CLONAZEPAM [Concomitant]
     Dosage: 1.5 G, DAILY
     Route: 048
  4. BUP-4 [Concomitant]
     Dosage: 20 MG, DAILY
     Route: 048
  5. URINORM [Concomitant]
     Dosage: 50 MG, DAILY
     Route: 048
  6. METHYCOBAL [Concomitant]
     Dosage: 50 MG, DAILY
     Route: 048
  7. TAKEPRON [Concomitant]
     Dosage: 15 MG, DAILY
     Route: 048
  8. ETIZOLAM [Concomitant]
     Dosage: 0.5 MG, DAILY
     Route: 048
  9. SOLANAX [Concomitant]
     Dosage: 0.4 MG, DAILY
     Route: 048

REACTIONS (3)
  - Glomerulonephritis membranoproliferative [Recovered/Resolved]
  - Protein urine [Recovered/Resolved]
  - Hypoproteinaemia [Recovered/Resolved]
